FAERS Safety Report 18736022 (Version 1)
Quarter: 2021Q1

REPORT INFORMATION
  Report Type: Spontaneous
  Country: DE (occurrence: DE)
  Receive Date: 20210113
  Receipt Date: 20210113
  Transmission Date: 20210419
  Serious: Yes (Death, Other)
  Sender: FDA-Public Use
  Company Number: NVSC2021DE005561

PATIENT
  Age: 3 Year
  Sex: Male

DRUGS (6)
  1. FLUDARABINE PHOSPHATE. [Suspect]
     Active Substance: FLUDARABINE PHOSPHATE
     Indication: STEM CELL TRANSPLANT
     Dosage: 40 MG/M2 (FREQUENCY ? IN 1 DAYS 40 MG/M2 FROM DAY ?7 TO ?4) (AS A PART OF T CELL DEPLETED STEM?CELL
     Route: 065
  2. TREOSULFAN [Suspect]
     Active Substance: TREOSULFAN
     Indication: STEM CELL TRANSPLANT
     Dosage: 14000 MG/M2 (FREQUENCY ? IN 1 DAYS 14000 MG/M2 FROM ?5 TO ?3) (AS A PART OF T CELL DEPLETED STEM?CEL
     Route: 065
  3. MYCOPHENOLATE MOFETIL. [Concomitant]
     Active Substance: MYCOPHENOLATE MOFETIL
     Indication: IMMUNOSUPPRESSION
     Dosage: UNK AS A PART OF T CELL DEPLETED STEM?CELL TRANSPLANT CONDITIONING REG
     Route: 065
  4. ANTITHYMOCYTE IMMUNOGLOBULIN [Suspect]
     Active Substance: THYMOCYTE IMMUNE GLOBULIN NOS
     Indication: STEM CELL TRANSPLANT
     Dosage: 15 MG/KG (FREQUENCY ? IN 1 DAYS 15 MG/KG FROM ?10 TO ?8)
     Route: 065
  5. CICLOSPORIN [Concomitant]
     Active Substance: CYCLOSPORINE
     Indication: IMMUNOSUPPRESSION
     Dosage: UNK
     Route: 065
  6. THIOTEPA. [Suspect]
     Active Substance: THIOTEPA
     Indication: STEM CELL TRANSPLANT
     Dosage: 5 MG/KG (FREQUENCY ? IN 1 DAYS 5 MG/KG ON DAY ?8 AND ?7)
     Route: 065

REACTIONS (3)
  - Respiratory failure [Fatal]
  - Gastroenteritis rotavirus [Unknown]
  - Pneumonia cytomegaloviral [Fatal]
